FAERS Safety Report 13068652 (Version 2)
Quarter: 2017Q1

REPORT INFORMATION
  Report Type: Report from Study
  Country: CA (occurrence: CA)
  Receive Date: 20161228
  Receipt Date: 20170206
  Transmission Date: 20170428
  Serious: No
  Sender: FDA-Public Use
  Company Number: CA-JNJFOC-20161215784

PATIENT
  Sex: Female
  Weight: 76.3 kg

DRUGS (1)
  1. STELARA [Suspect]
     Active Substance: USTEKINUMAB
     Indication: PSORIASIS
     Route: 058
     Dates: start: 20160817

REACTIONS (2)
  - Psoriasis [Recovering/Resolving]
  - Therapeutic response delayed [Recovering/Resolving]

NARRATIVE: CASE EVENT DATE: 2016
